FAERS Safety Report 13928512 (Version 2)
Quarter: 2017Q3

REPORT INFORMATION
  Report Type: Spontaneous
  Country: US (occurrence: US)
  Receive Date: 20170901
  Receipt Date: 20170929
  Transmission Date: 20171127
  Serious: No
  Sender: FDA-Public Use
  Company Number: US-PFIZER INC-2017376177

PATIENT
  Age: 77 Year
  Sex: Female

DRUGS (3)
  1. ADVIL [Suspect]
     Active Substance: IBUPROFEN
     Indication: ARTHRALGIA
     Dosage: 4 CAPSULES,THEN 4 MORE 4-5 HOURS LATER
     Route: 048
     Dates: start: 20170825, end: 201709
  2. DIGOXIN. [Concomitant]
     Active Substance: DIGOXIN
     Dosage: 125 UG, UNK
  3. FUROSEMIDE. [Concomitant]
     Active Substance: FUROSEMIDE
     Dosage: 40 MG, UNK

REACTIONS (2)
  - Drug ineffective [Not Recovered/Not Resolved]
  - Overdose [Unknown]

NARRATIVE: CASE EVENT DATE: 20170825
